FAERS Safety Report 6477796-0 (Version None)
Quarter: 2009Q4

REPORT INFORMATION
  Report Type: 
  Country: None (occurrence: None)
  Receive Date: 20091207
  Receipt Date: 20091126
  Transmission Date: 20100525
  Serious: Yes (Hospitalization, Other)
  Sender: FDA-Public Use
  Company Number: GB-JNJFOC-20091200309

PATIENT
  Age: 60 Year
  Sex: Female

DRUGS (5)
  1. PARACETAMOL [Suspect]
     Route: 048
  2. PARACETAMOL [Suspect]
     Indication: ANALGESIC THERAPY
     Route: 048
  3. CODEINE PHOSPHATE [Suspect]
     Indication: ANALGESIC THERAPY
     Dosage: 30-60 MG 4 TIMES DAILY
     Route: 048
  4. DABIGATRAN [Suspect]
     Indication: THROMBOSIS PROPHYLAXIS
     Route: 048
  5. LEVOTHYROXINE SODIUM [Suspect]
     Indication: THYROID DISORDER
     Route: 048

REACTIONS (2)
  - BLISTER [None]
  - WOUND SECRETION [None]
